FAERS Safety Report 6539316-1 (Version None)
Quarter: 2010Q1

REPORT INFORMATION
  Report Type: 
  Country: None (occurrence: None)
  Receive Date: 20100112
  Receipt Date: 20091229
  Transmission Date: 20100710
  Serious: Yes (Life-Threatening, Hospitalization, Other)
  Sender: FDA-Public Use
  Company Number: 2009-00126

PATIENT
  Age: 51 Year
  Sex: Female
  Weight: 72.5755 kg

DRUGS (7)
  1. CEFUROXIME AXETIL [Suspect]
     Indication: SINUSITIS
     Dosage: 500 MG ONCE, ORAL
     Route: 048
     Dates: start: 20091128, end: 20091128
  2. CEFUROXIME AXETIL [Suspect]
     Indication: SINUSITIS
     Dosage: 500 MG ONCE, ORAL
     Route: 048
     Dates: start: 20091207, end: 20091207
  3. MORPHINE SULFATE EXTENDED RELEASE (30 MILLIGRAM) [Concomitant]
  4. CONJUGATED ESTROGENS (0.625 MILLIGRAM, TABLETS) [Concomitant]
  5. FLUOXETINE (40 MILLIGRAM) [Concomitant]
  6. OMEPRAZOLE (20 MILLIGRAM) [Concomitant]
  7. MOMETASONE FUROATE MONOHYDRATE (NASAL DROPS (INCLUDING NASAL SPRAY) [Concomitant]

REACTIONS (5)
  - ABDOMINAL PAIN [None]
  - ANAPHYLACTIC SHOCK [None]
  - DIARRHOEA [None]
  - PNEUMONIA [None]
  - SNEEZING [None]
